FAERS Safety Report 11728628 (Version 3)
Quarter: 2016Q1

REPORT INFORMATION
  Report Type: Spontaneous
  Country: CN (occurrence: CN)
  Receive Date: 20151112
  Receipt Date: 20160203
  Transmission Date: 20160525
  Serious: Yes (Other)
  Sender: FDA-Public Use
  Company Number: CN-BAYER-2015-462207

PATIENT
  Age: 9 Year
  Sex: Male

DRUGS (1)
  1. CLARITYNE [Suspect]
     Active Substance: LORATADINE
     Indication: RASH
     Dosage: 1 DF, QD
     Dates: start: 2009

REACTIONS (5)
  - Tremor [Not Recovered/Not Resolved]
  - Brain injury [None]
  - Hypersensitivity [None]
  - Epilepsy [Not Recovered/Not Resolved]
  - Tic [None]

NARRATIVE: CASE EVENT DATE: 2009
